FAERS Safety Report 19282245 (Version 3)
Quarter: 2022Q1

REPORT INFORMATION
  Report Type: Spontaneous
  Country: JP (occurrence: JP)
  Receive Date: 20210520
  Receipt Date: 20220201
  Transmission Date: 20220423
  Serious: Yes (Other)
  Sender: FDA-Public Use
  Company Number: JP-ELI_LILLY_AND_COMPANY-JP202105007813

PATIENT
  Age: 1 Year
  Sex: Male
  Weight: 6.7 kg

DRUGS (28)
  1. TADALAFIL [Suspect]
     Active Substance: TADALAFIL
     Indication: Pulmonary hypertension
     Dosage: 5 MG, DAILY
     Route: 065
     Dates: start: 20180806
  2. TADALAFIL [Suspect]
     Active Substance: TADALAFIL
     Dosage: 8 MG, DAILY
     Route: 065
     Dates: start: 20180810
  3. UPTRAVI [Concomitant]
     Active Substance: SELEXIPAG
     Indication: Pulmonary hypertension
     Dosage: 0.16 MG, BID
     Route: 048
     Dates: start: 20180726, end: 20180913
  4. UPTRAVI [Concomitant]
     Active Substance: SELEXIPAG
     Dosage: 0.18 MG, BID
     Route: 048
     Dates: start: 20180914, end: 20180918
  5. UPTRAVI [Concomitant]
     Active Substance: SELEXIPAG
     Dosage: 0.2 MG, BID
     Route: 048
     Dates: start: 20180919, end: 20190310
  6. UPTRAVI [Concomitant]
     Active Substance: SELEXIPAG
     Dosage: 0.22 MG, BID
     Route: 048
     Dates: start: 20190311, end: 20190315
  7. UPTRAVI [Concomitant]
     Active Substance: SELEXIPAG
     Dosage: 0.24 MG, BID
     Route: 048
     Dates: start: 20190316, end: 20190330
  8. UPTRAVI [Concomitant]
     Active Substance: SELEXIPAG
     Dosage: 0.26 MG, BID
     Route: 048
     Dates: start: 20190331
  9. OPSUMIT [Concomitant]
     Active Substance: MACITENTAN
     Indication: Pulmonary hypertension
     Dosage: 1 MG, UNKNOWN
  10. REVATIO [Concomitant]
     Active Substance: SILDENAFIL CITRATE
     Indication: Pulmonary hypertension
     Dosage: 21.6 MG, UNKNOWN
     Dates: end: 20180808
  11. REVATIO [Concomitant]
     Active Substance: SILDENAFIL CITRATE
     Dosage: 11.2 MG, UNKNOWN
     Dates: end: 20180808
  12. FUROSEMIDE [Concomitant]
     Active Substance: FUROSEMIDE
     Indication: Cardiac failure
     Dosage: 15 MG, UNKNOWN
     Route: 065
     Dates: start: 20180701, end: 20180802
  13. FUROSEMIDE [Concomitant]
     Active Substance: FUROSEMIDE
     Dosage: 22 MG, UNKNOWN
     Route: 065
     Dates: start: 20180802, end: 20181004
  14. FUROSEMIDE [Concomitant]
     Active Substance: FUROSEMIDE
     Dosage: 21 MG, UNKNOWN
     Route: 065
     Dates: start: 20181005, end: 20181018
  15. FUROSEMIDE [Concomitant]
     Active Substance: FUROSEMIDE
     Dosage: 18 MG, UNKNOWN
     Route: 065
     Dates: start: 20181019, end: 20181216
  16. FUROSEMIDE [Concomitant]
     Active Substance: FUROSEMIDE
     Dosage: 15 MG, UNKNOWN
     Route: 065
     Dates: start: 20181217
  17. FUROSEMIDE [Concomitant]
     Active Substance: FUROSEMIDE
     Dosage: UNK
     Dates: start: 20180604, end: 20180613
  18. FUROSEMIDE [Concomitant]
     Active Substance: FUROSEMIDE
     Dosage: UNK
     Dates: start: 20180604, end: 20180805
  19. FUROSEMIDE [Concomitant]
     Active Substance: FUROSEMIDE
     Dosage: 3 MG, UNKNOWN
     Dates: start: 20180704, end: 20180706
  20. FUROSEMIDE [Concomitant]
     Active Substance: FUROSEMIDE
     Dosage: UNK UNK, UNKNOWN
     Dates: start: 20180707, end: 20180805
  21. ALDACTONE [Concomitant]
     Active Substance: SPIRONOLACTONE
     Indication: Cardiac failure
     Dosage: 15 MG, UNKNOWN
     Dates: start: 20180701, end: 20180802
  22. ALDACTONE [Concomitant]
     Active Substance: SPIRONOLACTONE
     Dosage: 22 MG, UNKNOWN
     Dates: start: 20180701, end: 20181004
  23. ALDACTONE [Concomitant]
     Active Substance: SPIRONOLACTONE
     Dosage: 21 MG, UNKNOWN
     Dates: start: 20181005, end: 20181018
  24. ALDACTONE [Concomitant]
     Active Substance: SPIRONOLACTONE
     Dosage: 18 MG, UNKNOWN
     Dates: start: 20181019, end: 20181216
  25. ALDACTONE [Concomitant]
     Active Substance: SPIRONOLACTONE
     Dosage: 15 MG, UNKNOWN
     Dates: start: 20181217
  26. SAMSCA [Concomitant]
     Active Substance: TOLVAPTAN
     Indication: Cardiac failure
     Dosage: UNK
     Dates: start: 20180701
  27. HYDROCHLOROTHIAZIDE [Concomitant]
     Active Substance: HYDROCHLOROTHIAZIDE
     Indication: Cardiac failure
     Dosage: UNK
     Dates: start: 20180801, end: 20181115
  28. WARFARIN [Concomitant]
     Active Substance: WARFARIN
     Indication: Thrombosis prophylaxis
     Dosage: UNK
     Dates: start: 20180614

REACTIONS (4)
  - Respiratory failure [Recovered/Resolved]
  - Pyrexia [Recovered/Resolved]
  - Platelet count decreased [Recovered/Resolved]
  - Off label use [Unknown]

NARRATIVE: CASE EVENT DATE: 20190327
